FAERS Safety Report 6447013-6 (Version None)
Quarter: 2009Q4

REPORT INFORMATION
  Report Type: 
  Country: None (occurrence: None)
  Receive Date: 20091119
  Receipt Date: 20091113
  Transmission Date: 20100525
  Serious: Yes (Hospitalization)
  Sender: FDA-Public Use
  Company Number: FR-BRISTOL-MYERS SQUIBB COMPANY-14858575

PATIENT
  Age: 86 Year
  Sex: Female

DRUGS (10)
  1. COAPROVEL TABS 150MG/12.5MG [Suspect]
     Indication: HYPERTENSION
     Dosage: 1 DF= 1 TAB
     Dates: end: 20091001
  2. INIPOMP [Suspect]
     Dates: end: 20091002
  3. TEGRETOL [Concomitant]
     Dosage: TEGRETOL LP
     Dates: end: 20090929
  4. LYRICA [Concomitant]
  5. RIVOTRIL [Concomitant]
     Dosage: 3X 5 DROPS / DAY
  6. SOTALOL HCL [Concomitant]
  7. AMLODIPINE [Concomitant]
  8. ADVIL [Concomitant]
  9. STILNOX [Concomitant]
  10. SPASFON [Concomitant]

REACTIONS (1)
  - HYPONATRAEMIA [None]
